FAERS Safety Report 10034702 (Version 2)
Quarter: 2014Q2

REPORT INFORMATION
  Report Type: Spontaneous
  Country: US (occurrence: US)
  Receive Date: 20140325
  Receipt Date: 20140408
  Transmission Date: 20141212
  Serious: Yes (Hospitalization, Other)
  Sender: FDA-Public Use
  Company Number: US-PFIZER INC-2014072562

PATIENT
  Age: 56 Year
  Sex: Female

DRUGS (16)
  1. PREMARIN [Suspect]
     Dosage: 0.45 MG, 1X/DAY
     Route: 048
  2. PREMARIN [Suspect]
     Dosage: 625 MG, 1X/DAY
     Route: 048
  3. PREMARIN [Suspect]
     Dosage: 3 MG, 1X/DAY
  4. PREMARIN [Suspect]
     Dosage: 0.06 MG, UNK
  5. PREMARIN [Suspect]
     Dosage: 625 MG, 1X/DAY
  6. VENTOLIN HFA [Concomitant]
     Dosage: UNK, (2 PUFFS EVERY 6 HOURS AS NEEDED)
  7. DETROL LA [Concomitant]
     Dosage: 4 MG, 1X/DAY
     Route: 048
  8. LIPITOR [Concomitant]
     Dosage: 10 MG, 1X/DAY
     Route: 048
  9. DITROPAN XL [Concomitant]
     Dosage: 5 MG, 1X/DAY
  10. DETROL [Concomitant]
     Dosage: 2 MG, 2X/DAY
  11. SEPTRA DS [Concomitant]
     Dosage: UNK
  12. PYRIDIUM [Concomitant]
     Dosage: 200 MG, 2X/DAY
     Route: 048
  13. DENAVIR [Concomitant]
     Indication: ORAL HERPES
     Dosage: UNK
  14. BEXTRA [Concomitant]
     Dosage: 10 MG, 1X/DAY
  15. ACCOLATE [Concomitant]
     Dosage: 20 MG, 2X/DAY (B.I.D. IN THE WINTER ONLY)
  16. ATIVAN [Concomitant]
     Dosage: 0.5 MG, AS NEEDED

REACTIONS (57)
  - Bronchitis [Unknown]
  - Cerebral small vessel ischaemic disease [Unknown]
  - Macular degeneration [Unknown]
  - Pulmonary congestion [Unknown]
  - Retinitis pigmentosa [Unknown]
  - Retinitis [Unknown]
  - Vitreous detachment [Unknown]
  - Cough [Unknown]
  - Respiratory tract congestion [Unknown]
  - Haemorrhoids [Unknown]
  - Headache [Unknown]
  - Facial pain [Unknown]
  - Face injury [Unknown]
  - Chest pain [Unknown]
  - Abdominal pain [Unknown]
  - Chest discomfort [Unknown]
  - Dyspnoea [Unknown]
  - Nausea [Unknown]
  - Paraesthesia [Unknown]
  - Abdominal discomfort [Unknown]
  - Oropharyngeal pain [Unknown]
  - Myalgia [Unknown]
  - Arthralgia [Unknown]
  - Paranasal sinus discomfort [Unknown]
  - Breast discomfort [Unknown]
  - Hot flush [Unknown]
  - Back pain [Unknown]
  - Oral herpes [Unknown]
  - Visual field defect [Unknown]
  - Dizziness [Unknown]
  - Bundle branch block right [Unknown]
  - Vaginal haemorrhage [Not Recovered/Not Resolved]
  - Urinary incontinence [Unknown]
  - Pain [Unknown]
  - Hypertonic bladder [Unknown]
  - Micturition urgency [Unknown]
  - Pelvic prolapse [Unknown]
  - Dyspnoea [Unknown]
  - Dyspnoea exertional [Unknown]
  - Abdominal pain lower [Unknown]
  - Postoperative wound complication [Unknown]
  - Vertigo [Unknown]
  - Vomiting [Unknown]
  - Neck pain [Unknown]
  - Sleep disorder [Unknown]
  - Ear disorder [Unknown]
  - Emphysema [Unknown]
  - Hepatic steatosis [Unknown]
  - Mammogram abnormal [Unknown]
  - Musculoskeletal discomfort [Unknown]
  - Limb injury [Unknown]
  - Breast mass [Unknown]
  - Urethral disorder [Unknown]
  - Paraesthesia [Unknown]
  - Pharyngeal erythema [Unknown]
  - Stress urinary incontinence [Unknown]
  - Bronchospasm [Unknown]
